FAERS Safety Report 10094829 (Version 3)
Quarter: 2014Q2

REPORT INFORMATION
  Report Type: Report from Study
  Country: AU (occurrence: AU)
  Receive Date: 20140422
  Receipt Date: 20140506
  Transmission Date: 20141212
  Serious: Yes (Hospitalization, Other)
  Sender: FDA-Public Use
  Company Number: PHHY2014AU036271

PATIENT
  Age: 86 Year
  Sex: Female
  Weight: 49 kg

DRUGS (16)
  1. ACLASTA [Suspect]
     Indication: OSTEOPOROSIS
     Dosage: 5 MG, UNK
     Route: 042
     Dates: start: 20130321
  2. ARISTOCORT [Concomitant]
     Dosage: APPLY THREE TIMES A DAY
  3. ASTRIX [Concomitant]
     Dosage: 1 DF, UNK
  4. CLOPIDOGREL [Concomitant]
     Dosage: 1 DF, UNK
  5. FRUSEMIDE [Concomitant]
     Dosage: 1 DF, IN THE MORNING
  6. LUVOX [Concomitant]
     Dosage: 1 DF, UNK
  7. METOPROLOL TARTRATE [Concomitant]
     Dosage: 1.5 DF, BID (ONE AND HALF TWICE A DAY)
  8. MICARDIS [Concomitant]
     Dosage: 1 DF, UNK
  9. NEXUM [Concomitant]
     Dosage: 1 DF, BID
  10. NITROLINGUAL [Concomitant]
     Indication: CHEST PAIN
     Dosage: 400 MCG/DOSE SPRAY 1 TO 2 SPRAY
  11. PANADOL OSTEO [Concomitant]
     Dosage: 2 TO 3 TIMES AS DIRECTED
  12. TRANSIDERM-NITRO [Concomitant]
     Dosage: 1 DF, OPN AT 8 PM, REMOVE AT 8 AM
  13. XALACOM [Concomitant]
     Dosage: 1 DRP, IN THE EVENING BOTH SIDES
  14. ZOCOR [Concomitant]
     Dosage: 1 DF, IN THE EVENING
  15. FLUVOXAMINE [Concomitant]
     Dosage: UNK UKN, UNK
  16. ASPIRIN [Concomitant]
     Dosage: UNK UKN, UNK

REACTIONS (21)
  - Myocardial infarction [Recovering/Resolving]
  - Diarrhoea [Recovering/Resolving]
  - Glaucoma [Unknown]
  - Angina pectoris [Unknown]
  - Ventricular extrasystoles [Unknown]
  - Gastric ulcer [Unknown]
  - Blood triglycerides increased [Unknown]
  - Blood iron decreased [Unknown]
  - Transferrin saturation decreased [Unknown]
  - Haemoglobin decreased [Unknown]
  - Red blood cell count decreased [Unknown]
  - Haematocrit decreased [Unknown]
  - Red blood cell sedimentation rate increased [Unknown]
  - Blood uric acid increased [Unknown]
  - Blood glucose increased [Unknown]
  - Blood calcium decreased [Unknown]
  - Blood creatinine increased [Unknown]
  - Blood urea increased [Unknown]
  - Fatigue [Recovered/Resolved]
  - Nausea [Recovered/Resolved]
  - Vomiting [Recovered/Resolved]
